FAERS Safety Report 6334456-4 (Version None)
Quarter: 2009Q3

REPORT INFORMATION
  Report Type: 
  Country: None (occurrence: None)
  Receive Date: 20090827
  Receipt Date: 20090813
  Transmission Date: 20100115
  Serious: No
  Sender: FDA-Public Use
  Company Number: SPI200900267

PATIENT
  Age: 35 Year
  Sex: Female
  Weight: 63 kg

DRUGS (7)
  1. AMITIZA [Suspect]
     Indication: CONSTIPATION
     Dosage: 24 MCG, BID, ORAL; 8 MCG, BID, ORAL
     Route: 048
     Dates: start: 20090709, end: 20090710
  2. AMITIZA [Suspect]
     Indication: IRRITABLE BOWEL SYNDROME
     Dosage: 24 MCG, BID, ORAL; 8 MCG, BID, ORAL
     Route: 048
     Dates: start: 20090709, end: 20090710
  3. AMITIZA [Suspect]
     Indication: CONSTIPATION
     Dosage: 24 MCG, BID, ORAL; 8 MCG, BID, ORAL
     Route: 048
     Dates: start: 20090810
  4. AMITIZA [Suspect]
     Indication: IRRITABLE BOWEL SYNDROME
     Dosage: 24 MCG, BID, ORAL; 8 MCG, BID, ORAL
     Route: 048
     Dates: start: 20090810
  5. MOBIC [Concomitant]
  6. ENBREL [Concomitant]
  7. LEVOTHYROXINE SODIUM [Concomitant]

REACTIONS (4)
  - CHEST DISCOMFORT [None]
  - DYSPNOEA [None]
  - JOINT SWELLING [None]
  - OEDEMA PERIPHERAL [None]
